FAERS Safety Report 4333332-6 (Version None)
Quarter: 2004Q2

REPORT INFORMATION
  Report Type: 
  Country: None (occurrence: None)
  Receive Date: 20040406
  Receipt Date: 20040331
  Transmission Date: 20050107
  Serious: Yes (Other)
  Sender: FDA-Public Use
  Company Number: GB-MERCK-0403GBR00317

PATIENT
  Age: 29 Year
  Sex: Male
  Weight: 100 kg

DRUGS (3)
  1. BUDESONIDE [Concomitant]
     Route: 055
  2. SINGULAIR [Suspect]
     Indication: ASTHMA
     Route: 048
     Dates: start: 20030901
  3. TERBUTALINE SULFATE [Concomitant]
     Route: 055

REACTIONS (1)
  - EPILEPSY [None]
